FAERS Safety Report 6886760 (Version 3)
Quarter: 2016Q4

REPORT INFORMATION
  Report Type: Spontaneous
  Country: US (occurrence: US)
  Receive Date: 20090120
  Receipt Date: 20161116
  Transmission Date: 20170207
  Serious: Yes (Other)
  Sender: FDA-Public Use
  Company Number: US-ELI_LILLY_AND_COMPANY-US200901001763

PATIENT
  Sex: Male
  Weight: 83.81 kg

DRUGS (11)
  1. HUMALOG [Suspect]
     Active Substance: INSULIN LISPRO
     Indication: TYPE 1 DIABETES MELLITUS
     Dosage: UNK, AS NEEDED
     Dates: start: 2005
  2. LEVOTHYROXINE. [Concomitant]
     Active Substance: LEVOTHYROXINE
     Dosage: 0.112 MG, DAILY (1/D)
  3. HUMULIN U [Suspect]
     Active Substance: INSULIN HUMAN
  4. LENTE ILETIN II (PORK) [Suspect]
     Active Substance: INSULIN PORK\INSULIN PURIFIED PORK
     Dosage: UNK, UNKNOWN
     Route: 065
  5. HUMULIN R [Suspect]
     Active Substance: INSULIN HUMAN
     Dosage: UNK
     Dates: start: 198901
  6. HUMULIN L [Suspect]
     Active Substance: INSULIN HUMAN
     Dosage: UNK
     Dates: start: 198901
  7. ILETIN I [Suspect]
     Active Substance: INSULIN PORK\INSULIN PURIFIED PORK
     Dosage: UNK, UNKNOWN
     Route: 065
  8. HUMULIN N [Suspect]
     Active Substance: INSULIN HUMAN
  9. ILETIN I [Suspect]
     Active Substance: INSULIN PORK\INSULIN PURIFIED PORK
  10. LANTUS [Concomitant]
     Active Substance: INSULIN GLARGINE
     Dosage: 23 U, DAILY (1/D)
  11. EPIPEN [Concomitant]
     Active Substance: EPINEPHRINE

REACTIONS (11)
  - Vision blurred [Unknown]
  - Anger [Unknown]
  - Visual acuity reduced [Not Recovered/Not Resolved]
  - Blindness [Not Recovered/Not Resolved]
  - Blood glucose increased [Unknown]
  - Stress [Not Recovered/Not Resolved]
  - Retinal ischaemia [Not Recovered/Not Resolved]
  - Feeling abnormal [Not Recovered/Not Resolved]
  - Posterior lens capsulotomy [Unknown]
  - Cataract [Unknown]
  - Depression [Unknown]

NARRATIVE: CASE EVENT DATE: 1985
